FAERS Safety Report 5605853-7 (Version None)
Quarter: 2008Q1

REPORT INFORMATION
  Report Type: 
  Country: None (occurrence: None)
  Receive Date: 20080129
  Receipt Date: 20080124
  Transmission Date: 20080703
  Serious: Yes (Other)
  Sender: FDA-Public Use
  Company Number: PHNU2008DE00714

PATIENT
  Sex: Female

DRUGS (8)
  1. RASILEZ [Suspect]
     Dates: start: 20070101
  2. RASILEZ [Suspect]
     Dosage: 150 MG/D
  3. CANDESARTAN CILEXETIL [Concomitant]
  4. CYNT [Concomitant]
  5. BISOPROLOL FUMARATE [Concomitant]
  6. XIPAMIDE [Concomitant]
  7. DIGIMERCK [Concomitant]
  8. MARCUMAR [Concomitant]

REACTIONS (3)
  - ALANINE AMINOTRANSFERASE INCREASED [None]
  - ASPARTATE AMINOTRANSFERASE INCREASED [None]
  - GAMMA-GLUTAMYLTRANSFERASE INCREASED [None]
